FAERS Safety Report 5977810-2 (Version None)
Quarter: 2008Q4

REPORT INFORMATION
  Report Type: 
  Country: None (occurrence: None)
  Receive Date: 20081203
  Receipt Date: 20081127
  Transmission Date: 20090506
  Serious: Yes (Life-Threatening, Hospitalization)
  Sender: FDA-Public Use
  Company Number: FR-BRISTOL-MYERS SQUIBB COMPANY-14184782

PATIENT
  Age: 75 Year
  Sex: Male

DRUGS (9)
  1. FOZITEC [Suspect]
     Route: 048
     Dates: end: 20080228
  2. PRAVASTATIN SODIUM [Suspect]
     Route: 048
     Dates: start: 19981031, end: 20080228
  3. ALLOPURINOL [Suspect]
     Route: 048
  4. LASIX [Suspect]
     Route: 048
  5. METFORMIN HCL [Concomitant]
     Route: 048
     Dates: end: 20080203
  6. PREVISCAN [Concomitant]
     Route: 048
     Dates: end: 20080228
  7. LEVOTHYROX [Concomitant]
     Route: 048
  8. MOPRAL [Concomitant]
     Route: 048
     Dates: end: 20080301
  9. AMLOD [Concomitant]
     Route: 048
     Dates: end: 20080229

REACTIONS (3)
  - CARDIAC FAILURE [None]
  - RENAL FAILURE ACUTE [None]
  - RHABDOMYOLYSIS [None]
